FAERS Safety Report 19052429 (Version 1)
Quarter: 2021Q1

REPORT INFORMATION
  Report Type: Spontaneous
  Country: ES (occurrence: ES)
  Receive Date: 20210324
  Receipt Date: 20210324
  Transmission Date: 20210420
  Serious: Yes (Other)
  Sender: FDA-Public Use
  Company Number: ES-ALVOGEN-2021-ALVOGEN-116776

PATIENT
  Age: 30 Year
  Sex: Female

DRUGS (3)
  1. INSULIN HUMAN [Concomitant]
     Active Substance: INSULIN HUMAN
     Indication: TYPE 1 DIABETES MELLITUS
  2. INSULIN ASPART [Concomitant]
     Active Substance: INSULIN ASPART
     Indication: TYPE 1 DIABETES MELLITUS
  3. LABETALOL HYDROCHLORIDE. [Suspect]
     Active Substance: LABETALOL HYDROCHLORIDE
     Indication: HYPERTENSION
     Dates: start: 20170410

REACTIONS (1)
  - Hypoglycaemia unawareness [Recovered/Resolved]

NARRATIVE: CASE EVENT DATE: 20170420
